FAERS Safety Report 5790789-1 (Version None)
Quarter: 2008Q2

REPORT INFORMATION
  Report Type: 
  Country: None (occurrence: None)
  Receive Date: 20080626
  Receipt Date: 20080506
  Transmission Date: 20081010
  Serious: No
  Sender: FDA-Public Use
  Company Number: A0726521A

PATIENT
  Age: 57 Year
  Sex: Female

DRUGS (2)
  1. ALLI [Suspect]
     Dates: start: 20080421
  2. INSULIN [Concomitant]

REACTIONS (4)
  - ANORECTAL DISCOMFORT [None]
  - DIARRHOEA [None]
  - PROCTALGIA [None]
  - RECTAL TENESMUS [None]
